FAERS Safety Report 22249596 (Version 1)
Quarter: 2023Q2

REPORT INFORMATION
  Report Type: Spontaneous
  Country: GB (occurrence: GB)
  Receive Date: 20230425
  Receipt Date: 20230425
  Transmission Date: 20230722
  Serious: Yes (Other)
  Sender: FDA-Public Use
  Company Number: GB-NALPROPION PHARMACEUTICALS INC.-GB-2023CUR001556

PATIENT
  Age: 33 Year
  Sex: Female
  Weight: 103 kg

DRUGS (6)
  1. BUPROPION HYDROCHLORIDE\NALTREXONE HYDROCHLORIDE [Suspect]
     Active Substance: BUPROPION HYDROCHLORIDE\NALTREXONE HYDROCHLORIDE
     Indication: Weight decreased
     Dosage: STRENGTH 8/90MG, UNKNOWN DOSE AND FREQUENCY
     Route: 065
     Dates: start: 20230101, end: 2023
  2. BUPROPION HYDROCHLORIDE\NALTREXONE HYDROCHLORIDE [Suspect]
     Active Substance: BUPROPION HYDROCHLORIDE\NALTREXONE HYDROCHLORIDE
     Dosage: STRENGTH 8/90MG, X4 TABLETS, 2 TABLETS BD
     Route: 065
     Dates: start: 2023, end: 2023
  3. BUPROPION HYDROCHLORIDE\NALTREXONE HYDROCHLORIDE [Suspect]
     Active Substance: BUPROPION HYDROCHLORIDE\NALTREXONE HYDROCHLORIDE
     Dosage: STRENGTH 8/90MG, UNKNOWN DOSE AND FREQUENCY (DOSE REDUCED)
     Route: 065
     Dates: start: 2023, end: 20230410
  4. IBUPROFEN [Concomitant]
     Active Substance: IBUPROFEN
     Indication: Headache
     Dosage: UNK
  5. OZEMPIC [Concomitant]
     Active Substance: SEMAGLUTIDE
     Indication: Weight decreased
     Dosage: UNK
     Dates: start: 20220901
  6. ACETAMINOPHEN [Concomitant]
     Active Substance: ACETAMINOPHEN
     Indication: Headache
     Dosage: UNK

REACTIONS (6)
  - Self-injurious ideation [Not Recovered/Not Resolved]
  - Depression suicidal [Recovering/Resolving]
  - Anger [Recovering/Resolving]
  - Conversion disorder [Recovering/Resolving]
  - Mood swings [Not Recovered/Not Resolved]
  - Headache [Not Recovered/Not Resolved]

NARRATIVE: CASE EVENT DATE: 20230208
